FAERS Safety Report 5886631-0 (Version None)
Quarter: 2008Q3

REPORT INFORMATION
  Report Type: 
  Country: None (occurrence: None)
  Receive Date: 20080917
  Receipt Date: 20080908
  Transmission Date: 20090109
  Serious: Yes (Other)
  Sender: FDA-Public Use
  Company Number: PHBS2008PL05670

PATIENT
  Age: 39 Year
  Sex: Male

DRUGS (7)
  1. CYCLOSPORINE [Suspect]
     Indication: RENAL TRANSPLANT
     Dosage: UNK
  2. EVEROLIMUS [Suspect]
     Indication: RENAL TRANSPLANT
     Dosage: 2 MG/DAY
  3. TACROLIMUS [Concomitant]
     Indication: RENAL TRANSPLANT
  4. STEROIDS NOS [Concomitant]
  5. MYCOPHENOLATE MOFETIL [Concomitant]
  6. PREDNISOLONE [Concomitant]
  7. LOSARTAN [Concomitant]

REACTIONS (14)
  - CHRONIC ALLOGRAFT NEPHROPATHY [None]
  - COMPLEMENT FACTOR C3 DECREASED [None]
  - COMPLICATIONS OF TRANSPLANTED KIDNEY [None]
  - DIALYSIS [None]
  - FOCAL SEGMENTAL GLOMERULOSCLEROSIS [None]
  - GLOMERULONEPHRITIS [None]
  - HAEMATURIA [None]
  - KIDNEY FIBROSIS [None]
  - LEUKOCYTURIA [None]
  - NECROSIS [None]
  - NEPHROPATHY TOXIC [None]
  - PROTEINURIA [None]
  - RASH [None]
  - RENAL TUBULAR ATROPHY [None]
